FAERS Safety Report 10014039 (Version 1)
Quarter: 2014Q1

REPORT INFORMATION
  Report Type: Spontaneous
  Country: JP (occurrence: JP)
  Receive Date: 20140317
  Receipt Date: 20140317
  Transmission Date: 20141002
  Serious: Yes (Other)
  Sender: FDA-Public Use
  Company Number: PHHY2014JP028773

PATIENT
  Sex: 0

DRUGS (1)
  1. THIAMAZOLE [Suspect]
     Indication: HYPERTHYROIDISM

REACTIONS (3)
  - Glomerulonephritis membranous [Unknown]
  - Eyelid oedema [Unknown]
  - Oedema peripheral [Unknown]
